FAERS Safety Report 21962368 (Version 1)
Quarter: 2023Q1

REPORT INFORMATION
  Report Type: Report from Study
  Country: US (occurrence: US)
  Receive Date: 20230207
  Receipt Date: 20230207
  Transmission Date: 20230417
  Serious: No
  Sender: FDA-Public Use
  Company Number: US-ORG100014127-2022000266

PATIENT
  Age: 52 Year
  Sex: Female

DRUGS (14)
  1. LYSODREN [Suspect]
     Active Substance: MITOTANE
     Indication: Adrenal gland cancer
     Dosage: 07 TABLETS TWICE DAILY
     Route: 048
     Dates: start: 20210806
  2. LYSODREN [Suspect]
     Active Substance: MITOTANE
     Indication: Adrenal gland cancer
     Dosage: 08 TABLETS TWICE DAILY
     Route: 048
  3. DILTIAZEM CAP 360MG ER [Concomitant]
     Indication: Product used for unknown indication
  4. FERROUS SULF TAB 325MG [Concomitant]
     Indication: Product used for unknown indication
  5. FLECAINIDE TAB 100MG [Concomitant]
     Indication: Product used for unknown indication
  6. Fludrocort Tab 0.1 mg [Concomitant]
     Indication: Product used for unknown indication
  7. HYDROCORTISO LOT 0.1% [Concomitant]
     Indication: Product used for unknown indication
  8. LOPERAMIDE CAP 2MG [Concomitant]
     Indication: Product used for unknown indication
  9. LOSARTAN POT TAB 50MG [Concomitant]
     Indication: Product used for unknown indication
  10. MONTELUKAST SODIUM [Concomitant]
     Active Substance: MONTELUKAST SODIUM
     Indication: Product used for unknown indication
  11. PANTOPRAZOLE TAB 40MG [Concomitant]
     Indication: Product used for unknown indication
  12. PRADAXA CAP 110MG [Concomitant]
     Indication: Product used for unknown indication
  13. PROCHLORPER TAB 10MG [Concomitant]
     Indication: Product used for unknown indication
  14. VITAMIN D TAB 50MCG [Concomitant]
     Indication: Product used for unknown indication

REACTIONS (7)
  - Sinusitis [Not Recovered/Not Resolved]
  - Headache [Unknown]
  - Diarrhoea [Not Recovered/Not Resolved]
  - Nausea [Not Recovered/Not Resolved]
  - Fatigue [Unknown]
  - Dizziness [Unknown]
  - Vomiting [Not Recovered/Not Resolved]

NARRATIVE: CASE EVENT DATE: 20220101
